FAERS Safety Report 6453153-8 (Version None)
Quarter: 2009Q4

REPORT INFORMATION
  Report Type: 
  Country: None (occurrence: None)
  Receive Date: 20091123
  Receipt Date: 20091123
  Transmission Date: 20100525
  Serious: Yes (Death)
  Sender: FDA-Public Use
  Company Number: None

PATIENT
  Sex: Male

DRUGS (9)
  1. REVLIMID [Suspect]
     Indication: MULTIPLE MYELOMA
     Dosage: 10MG TWICE A WEEK ORALLY
     Route: 048
  2. ASPIRIN [Concomitant]
  3. DOCUSATE SODIUM [Concomitant]
  4. FUROSEMIDE [Concomitant]
  5. FLOMAX [Concomitant]
  6. RENVELA [Concomitant]
  7. MEGESTROL [Concomitant]
  8. VICODIN [Concomitant]
  9. FLONASE [Concomitant]

REACTIONS (1)
  - DEATH [None]
